FAERS Safety Report 6897591-8 (Version None)
Quarter: 2010Q3

REPORT INFORMATION
  Report Type: 
  Country: None (occurrence: None)
  Receive Date: 20100802
  Receipt Date: 20070626
  Transmission Date: 20110219
  Serious: No
  Sender: FDA-Public Use
  Company Number: US-PFIZER INC-2007027383

PATIENT
  Age: 70 Year
  Sex: Female

DRUGS (3)
  1. LYRICA [Interacting]
     Indication: SCIATICA
  2. FENTANYL [Interacting]
     Route: 061
  3. TRAMADOL HYDROCHLORIDE [Suspect]

REACTIONS (4)
  - BRADYPHRENIA [None]
  - DERMATITIS CONTACT [None]
  - DRUG INEFFECTIVE [None]
  - DRUG INTERACTION [None]
